FAERS Safety Report 8409676-5 (Version None)
Quarter: 2012Q2

REPORT INFORMATION
  Report Type: 
  Country: None (occurrence: None)
  Receive Date: 20120605
  Receipt Date: 20120530
  Transmission Date: 20120825
  Serious: Yes (Hospitalization)
  Sender: FDA-Public Use
  Company Number: GB-BAYER-2012-054382

PATIENT
  Age: 37 Year
  Sex: Female

DRUGS (6)
  1. LEVONELLE 1500 MICROGRAMM TABLET [Concomitant]
  2. VALPROATE SODIUM [Concomitant]
  3. FOLIC ACID [Concomitant]
  4. RISPERIDONE [Concomitant]
  5. MIRENA [Suspect]
     Indication: CONTRACEPTION
  6. MIRENA [Suspect]
     Indication: MENORRHAGIA
     Dosage: 20 ?G/D, CONT
     Route: 015
     Dates: start: 20070328

REACTIONS (2)
  - NO ADVERSE EVENT [None]
  - MANIA [None]
